FAERS Safety Report 18184568 (Version 2)
Quarter: 2020Q3

REPORT INFORMATION
  Report Type: Spontaneous
  Country: BR (occurrence: BR)
  Receive Date: 20200824
  Receipt Date: 20200826
  Transmission Date: 20201103
  Serious: Yes (Hospitalization, Other)
  Sender: FDA-Public Use
  Company Number: BR-ABBVIE-20K-020-3531280-00

PATIENT
  Age: 26 Year
  Sex: Female
  Weight: 51 kg

DRUGS (10)
  1. CYCLOSPORINE. [Concomitant]
     Active Substance: CYCLOSPORINE
     Indication: PRODUCT USED FOR UNKNOWN INDICATION
     Route: 042
  2. PREDNISONE. [Concomitant]
     Active Substance: PREDNISONE
     Indication: PRODUCT USED FOR UNKNOWN INDICATION
  3. HYDROCORTISONE. [Suspect]
     Active Substance: HYDROCORTISONE
     Indication: PRODUCT USED FOR UNKNOWN INDICATION
     Route: 065
  4. ADALIMUMAB [Suspect]
     Active Substance: ADALIMUMAB
     Indication: COLITIS ULCERATIVE
     Route: 058
  5. PREDNISONE. [Concomitant]
     Active Substance: PREDNISONE
  6. TOFACITINIB [Concomitant]
     Active Substance: TOFACITINIB
  7. ADALIMUMAB [Suspect]
     Active Substance: ADALIMUMAB
     Dosage: DOSE INCREASED
     Route: 058
  8. TOFACITINIB [Concomitant]
     Active Substance: TOFACITINIB
     Dates: start: 2020, end: 2020
  9. TOFACITINIB [Concomitant]
     Active Substance: TOFACITINIB
     Dates: start: 2020, end: 2020
  10. TOFACITINIB [Concomitant]
     Active Substance: TOFACITINIB
     Indication: PRODUCT USED FOR UNKNOWN INDICATION
     Dates: start: 20200130, end: 2020

REACTIONS (15)
  - Weight decreased [Unknown]
  - Gastrointestinal mucosa hyperaemia [Unknown]
  - Gastrointestinal erosion [Unknown]
  - Flank pain [Unknown]
  - Frequent bowel movements [Recovering/Resolving]
  - Hypochromasia [Unknown]
  - Condition aggravated [Unknown]
  - Abdominal pain lower [Unknown]
  - Drug ineffective [Unknown]
  - Drug ineffective [Unknown]
  - Gastrointestinal oedema [Unknown]
  - Gastrointestinal disorder [Unknown]
  - Large intestinal ulcer [Unknown]
  - Diarrhoea [Unknown]
  - Colitis [Unknown]

NARRATIVE: CASE EVENT DATE: 2018
